FAERS Safety Report 7367034-9 (Version None)
Quarter: 2011Q1

REPORT INFORMATION
  Report Type: 
  Country: None (occurrence: None)
  Receive Date: 20110317
  Receipt Date: 20110317
  Transmission Date: 20110831
  Serious: Yes (Hospitalization)
  Sender: FDA-Public Use
  Company Number: None

PATIENT
  Age: 36 Year
  Sex: Female
  Weight: 71.2147 kg

DRUGS (2)
  1. ALBUTEROL SULFATE [Suspect]
     Indication: WHEEZING
     Dosage: 2.5 MG /3ML 1 TREATMENT INHAL
     Route: 055
     Dates: start: 20110315, end: 20110315
  2. ALBUTEROL SULFATE [Suspect]
     Indication: ASTHMA
     Dosage: 2.5 MG /3ML 1 TREATMENT INHAL
     Route: 055
     Dates: start: 20110315, end: 20110315

REACTIONS (11)
  - CONDITION AGGRAVATED [None]
  - SINUS TACHYCARDIA [None]
  - ELECTROCARDIOGRAM ST-T SEGMENT ABNORMAL [None]
  - TACHYPNOEA [None]
  - TREMOR [None]
  - HEADACHE [None]
  - COUGH [None]
  - BLOOD PRESSURE INCREASED [None]
  - ECG SIGNS OF MYOCARDIAL ISCHAEMIA [None]
  - WHEEZING [None]
  - CHILLS [None]
